FAERS Safety Report 13082979 (Version 1)
Quarter: 2017Q1

REPORT INFORMATION
  Report Type: Spontaneous
  Country: US (occurrence: US)
  Receive Date: 20170104
  Receipt Date: 20170104
  Transmission Date: 20170428
  Serious: No
  Sender: FDA-Public Use
  Company Number: US-AUROBINDO-AUR-APL-2016-12841

PATIENT
  Age: 69 Year
  Sex: Female

DRUGS (1)
  1. DULOXETINE DELAYED-RELEASE CAPSULES USP 30 MG [Suspect]
     Active Substance: DULOXETINE
     Indication: PRODUCT USED FOR UNKNOWN INDICATION
     Dosage: 30 MG, 3 TIMES A DAY
     Route: 048

REACTIONS (5)
  - Blood sodium decreased [Unknown]
  - Memory impairment [Unknown]
  - Balance disorder [Unknown]
  - Confusional state [Unknown]
  - Disturbance in attention [Unknown]

NARRATIVE: CASE EVENT DATE: 201601
